FAERS Safety Report 9990277 (Version 1)
Quarter: 2014Q1

REPORT INFORMATION
  Report Type: Report from Study
  Country: US (occurrence: US)
  Receive Date: 20140310
  Receipt Date: 20140310
  Transmission Date: 20141002
  Serious: No
  Sender: FDA-Public Use
  Company Number: US-ABBVIE-13P-163-1129070-00

PATIENT
  Age: 52 Year
  Sex: Female

DRUGS (9)
  1. HUMIRA [Suspect]
     Indication: CROHN^S DISEASE
     Dates: start: 201203, end: 201203
  2. HUMIRA [Suspect]
     Dosage: TWO WEEKS AFTER 160 MG DOSE
     Dates: start: 2012, end: 2012
  3. HUMIRA [Suspect]
     Dosage: FOUR WEEKS AFTER 160 MG DOSE
     Dates: start: 2012
  4. IMURAN [Concomitant]
     Indication: CROHN^S DISEASE
  5. PROPANOLOL [Concomitant]
     Indication: MIGRAINE
  6. CELEXA [Concomitant]
     Indication: DEPRESSION
  7. VITAMINS [Concomitant]
     Indication: VITAMIN SUPPLEMENTATION
  8. EYE VITAMINS [Concomitant]
     Indication: PROPHYLAXIS
  9. WELLBUTRIN [Concomitant]
     Indication: DEPRESSION

REACTIONS (5)
  - Poor quality drug administered [Not Recovered/Not Resolved]
  - Abdominal pain [Not Recovered/Not Resolved]
  - Decreased appetite [Not Recovered/Not Resolved]
  - Weight decreased [Not Recovered/Not Resolved]
  - Flatulence [Not Recovered/Not Resolved]
